FAERS Safety Report 17958610 (Version 2)
Quarter: 2020Q3

REPORT INFORMATION
  Report Type: Report from Study
  Country: CA (occurrence: CA)
  Receive Date: 20200630
  Receipt Date: 20200706
  Transmission Date: 20201103
  Serious: Yes (Other)
  Sender: FDA-Public Use
  Company Number: CA-SAMSUNG BIOEPIS-SB-2020-18320

PATIENT
  Age: 67 Year
  Sex: Female
  Weight: 53.5 kg

DRUGS (5)
  1. PREDNISONE. [Concomitant]
     Active Substance: PREDNISONE
     Dosage: DOSE? UNKNOWN (TAPERING DOWN)
     Route: 065
  2. PREDNISONE. [Concomitant]
     Active Substance: PREDNISONE
     Indication: PRODUCT USED FOR UNKNOWN INDICATION
     Dosage: (30 MG TAPERING DOWN)
     Route: 065
  3. RENFLEXIS [Suspect]
     Active Substance: INFLIXIMAB-ABDA
     Indication: COLITIS ULCERATIVE
     Dosage: WEEK 0 FIRST DOSE
     Route: 042
     Dates: start: 20200511
  4. RENFLEXIS [Suspect]
     Active Substance: INFLIXIMAB-ABDA
     Route: 042
  5. RENFLEXIS [Suspect]
     Active Substance: INFLIXIMAB-ABDA
     Dosage: AFTER TWO WEEKS? SECOND DOSE
     Route: 042
     Dates: start: 20200522

REACTIONS (13)
  - Haemoglobin decreased [Unknown]
  - Malaise [Unknown]
  - Heart rate increased [Unknown]
  - Product use issue [Unknown]
  - Pyrexia [Unknown]
  - Crohn^s disease [Unknown]
  - Tremor [Unknown]
  - Chills [Unknown]
  - Hypotension [Unknown]
  - Asthma [Unknown]
  - Oedema peripheral [Unknown]
  - Feeling cold [Unknown]
  - General physical health deterioration [Unknown]

NARRATIVE: CASE EVENT DATE: 20200525
